FAERS Safety Report 8501820-4 (Version None)
Quarter: 2012Q3

REPORT INFORMATION
  Report Type: 
  Country: None (occurrence: None)
  Receive Date: 20120705
  Receipt Date: 20120705
  Transmission Date: 20120928
  Serious: Yes (Hospitalization)
  Sender: FDA-Public Use
  Company Number: None

PATIENT
  Age: 59 Year
  Sex: Male
  Weight: 93.9 kg

DRUGS (2)
  1. ASPIRIN [Suspect]
     Indication: CEREBROVASCULAR ACCIDENT PROPHYLAXIS
     Dosage: 81 MG EVERY DAY PO
     Route: 048
     Dates: start: 20080324, end: 20120530
  2. IBUPROFEN [Suspect]
     Indication: PAIN
     Dosage: 800 MG QWEEK PO
     Route: 048
     Dates: start: 20120502, end: 20120530

REACTIONS (7)
  - GASTRIC HAEMORRHAGE [None]
  - ABDOMINAL PAIN UPPER [None]
  - FAECES DISCOLOURED [None]
  - DUODENAL ULCER [None]
  - ABDOMINAL PAIN [None]
  - MELAENA [None]
  - HAEMOGLOBIN DECREASED [None]
